FAERS Safety Report 4315908-5 (Version None)
Quarter: 2004Q1

REPORT INFORMATION
  Report Type: 
  Country: None (occurrence: None)
  Receive Date: 20040302
  Receipt Date: 20040130
  Transmission Date: 20041129
  Serious: Yes (Other)
  Sender: FDA-Public Use
  Company Number: US060489

PATIENT
  Sex: Female

DRUGS (6)
  1. ENBREL [Suspect]
     Indication: RHEUMATOID ARTHRITIS
     Dosage: 25 MG, 2 IN 1 WEEKS
     Dates: start: 20000601, end: 20031201
  2. TRIAZOLAM [Concomitant]
  3. ESTROPIPATE [Concomitant]
  4. FLUOXETINE HCL [Concomitant]
  5. DEXTROPROPOXYPHENE NAPSILATE W/ ACETOMINOPHEN [Concomitant]
  6. NIZATIDINE [Concomitant]

REACTIONS (1)
  - APLASTIC ANAEMIA [None]
